FAERS Safety Report 7942257-6 (Version None)
Quarter: 2011Q4

REPORT INFORMATION
  Report Type: 
  Country: None (occurrence: None)
  Receive Date: 20111128
  Receipt Date: 20111102
  Transmission Date: 20120403
  Serious: No
  Sender: FDA-Public Use
  Company Number: US-ABBOTT-11P-163-0871059-00

PATIENT
  Sex: Male
  Weight: 121.67 kg

DRUGS (2)
  1. UNKNOWN ANTIDEPRESSION MEDICATION [Concomitant]
     Indication: PRODUCT USED FOR UNKNOWN INDICATION
  2. ANDROGEL [Suspect]
     Indication: BLOOD TESTOSTERONE DECREASED
     Dates: start: 20111001

REACTIONS (2)
  - BLOOD URINE PRESENT [None]
  - PROSTATOMEGALY [None]
